FAERS Safety Report 8742314 (Version 2)
Quarter: 2012Q4

REPORT INFORMATION
  Report Type: 
  Country: US (occurrence: US)
  Receive Date: 20120824
  Receipt Date: 20120910
  Transmission Date: 20130627
  Serious: Yes (Death)
  Sender: FDA-Public Use
  Company Number: US-CELGENEUS-163-21880-11093041

PATIENT
  Age: 73 None
  Sex: Female

DRUGS (13)
  1. REVLIMID [Suspect]
     Indication: PLASMA CELL LEUKEMIA
     Dosage: 15 Milligram
     Route: 048
     Dates: start: 200904
  2. REVLIMID [Suspect]
     Dosage: 15 Milligram
     Route: 048
     Dates: start: 200911
  3. REVLIMID [Suspect]
     Dosage: 15 Milligram
     Route: 048
     Dates: start: 20100426, end: 20110602
  4. DECADRON [Concomitant]
     Indication: DRUG USE FOR UNKNOWN INDICATION
     Route: 065
  5. REMERON [Concomitant]
     Indication: DRUG USE FOR UNKNOWN INDICATION
     Route: 065
  6. K SUPPLEMENT [Concomitant]
     Indication: DRUG USE FOR UNKNOWN INDICATION
     Route: 065
  7. ZOFRAN [Concomitant]
     Indication: DRUG USE FOR UNKNOWN INDICATION
     Route: 065
  8. IRON SUPPLEMENT [Concomitant]
     Indication: DRUG USE FOR UNKNOWN INDICATION
     Dosage: 325 Milligram
     Route: 065
  9. LOPERAMIDE [Concomitant]
     Indication: DRUG USE FOR UNKNOWN INDICATION
     Route: 065
  10. DIAZIDE [Concomitant]
     Indication: BLOOD PRESSURE
     Route: 065
  11. BYSTOLIC [Concomitant]
     Indication: BLOOD PRESSURE
     Dosage: 10 Milligram
     Route: 065
  12. VITAMIN B COMPLEX [Concomitant]
     Indication: DRUG USE FOR UNKNOWN INDICATION
     Route: 048
  13. KCL [Concomitant]
     Indication: DRUG USE FOR UNKNOWN INDICATION
     Dosage: 20 Milligram
     Route: 048

REACTIONS (2)
  - Plasma cell leukaemia [Fatal]
  - Diarrhoea [Recovered/Resolved]
